FAERS Safety Report 13066152 (Version 2)
Quarter: 2017Q1

REPORT INFORMATION
  Report Type: Report from Study
  Country: US (occurrence: US)
  Receive Date: 20161227
  Receipt Date: 20170112
  Transmission Date: 20170428
  Serious: No
  Sender: FDA-Public Use
  Company Number: US-JNJFOC-20161221435

PATIENT
  Age: 48 Year
  Sex: Female
  Weight: 52.16 kg

DRUGS (4)
  1. STELARA [Suspect]
     Active Substance: USTEKINUMAB
     Indication: COLITIS ULCERATIVE
     Route: 042
     Dates: end: 20161230
  2. STELARA [Suspect]
     Active Substance: USTEKINUMAB
     Indication: CROHN^S DISEASE
     Route: 042
     Dates: end: 20161230
  3. STELARA [Suspect]
     Active Substance: USTEKINUMAB
     Indication: COLITIS ULCERATIVE
     Route: 042
     Dates: start: 20161212
  4. STELARA [Suspect]
     Active Substance: USTEKINUMAB
     Indication: CROHN^S DISEASE
     Route: 042
     Dates: start: 20161212

REACTIONS (6)
  - Visual field defect [Recovered/Resolved]
  - Pruritus [Recovered/Resolved]
  - Swelling [Recovered/Resolved]
  - Headache [Recovered/Resolved]
  - Rash [Unknown]
  - Urticaria [Recovered/Resolved]

NARRATIVE: CASE EVENT DATE: 20161212
